FAERS Safety Report 23725366 (Version 2)
Quarter: 2024Q2

REPORT INFORMATION
  Report Type: Report from Study
  Country: CA (occurrence: CA)
  Receive Date: 20240410
  Receipt Date: 20240502
  Transmission Date: 20240716
  Serious: No
  Sender: FDA-Public Use
  Company Number: CA-LEO Pharma-368144

PATIENT
  Age: 82 Year
  Sex: Female

DRUGS (3)
  1. ADBRY [Suspect]
     Active Substance: TRALOKINUMAB-LDRM
     Indication: Dermatitis atopic
     Dosage: MAINTENANCE DOSE?DOSAGE FORM AND STRENGTH: 150 MG/ML PRE-FILLED SYRINGE
     Route: 058
  2. ADBRY [Suspect]
     Active Substance: TRALOKINUMAB-LDRM
     Indication: Dermatitis atopic
     Dosage: LOADING DOSE?FORM AND STRENGTH: 150 MG/ML PRE-FILLED SYRINGE
     Route: 058
     Dates: start: 20230622
  3. ADBRY [Suspect]
     Active Substance: TRALOKINUMAB-LDRM
     Indication: Dermatitis atopic
     Dosage: MAINTENANCE DOSE?DOSAGE FORM AND STRENGTH: 150 MG/ML PRE-FILLED SYRINGE
     Route: 058

REACTIONS (3)
  - Retinal disorder [Unknown]
  - Eye infection [Recovered/Resolved]
  - Drug hypersensitivity [Unknown]
